FAERS Safety Report 20426870 (Version 1)
Quarter: 2022Q1

REPORT INFORMATION
  Report Type: Spontaneous
  Country: US (occurrence: US)
  Receive Date: 20220204
  Receipt Date: 20220204
  Transmission Date: 20220423
  Serious: No
  Sender: FDA-Public Use
  Company Number: US-EXELIXIS-CABO-21046179

PATIENT
  Sex: Male

DRUGS (2)
  1. CABOMETYX [Suspect]
     Active Substance: CABOZANTINIB S-MALATE
     Indication: Renal cancer stage IV
     Dosage: UNK
     Dates: start: 202108
  2. NIVOLUMAB [Suspect]
     Active Substance: NIVOLUMAB
     Indication: Renal cancer stage IV
     Dosage: UNK
     Dates: start: 202108

REACTIONS (7)
  - Tumour necrosis [Unknown]
  - Pneumonitis [Unknown]
  - Bone neoplasm [Unknown]
  - Dry skin [Unknown]
  - Fatigue [Unknown]
  - Hypertension [Unknown]
  - Hepatic enzyme abnormal [Unknown]
